FAERS Safety Report 4718262-X (Version None)
Quarter: 2005Q3

REPORT INFORMATION
  Report Type: 
  Country: None (occurrence: None)
  Receive Date: 20050714
  Receipt Date: 20040812
  Transmission Date: 20060218
  Serious: Yes (Other)
  Sender: FDA-Public Use
  Company Number: HQWYE288716AUG04

PATIENT
  Age: 8 Year
  Sex: Female

DRUGS (1)
  1. ADVIL [Suspect]
     Dosage: UNKNOWN, ORAL
     Route: 048

REACTIONS (1)
  - ANAPHYLACTIC REACTION [None]
